FAERS Safety Report 7727783-7 (Version None)
Quarter: 2011Q3

REPORT INFORMATION
  Report Type: 
  Country: None (occurrence: None)
  Receive Date: 20110905
  Receipt Date: 20110825
  Transmission Date: 20111222
  Serious: Yes (Other)
  Sender: FDA-Public Use
  Company Number: IT-BRISTOL-MYERS SQUIBB COMPANY-15423346

PATIENT
  Age: 71 Year
  Sex: Female

DRUGS (3)
  1. GLYBURIDE [Concomitant]
     Dosage: TAKING SINCE 9 YRS
  2. METFORMIN HCL [Concomitant]
     Dosage: TAKING SINCE 9YRS
  3. ONGLYZA [Suspect]
     Indication: TYPE 2 DIABETES MELLITUS
     Dosage: INTERRUPTED ON 19-OCT-2010
     Route: 048
     Dates: start: 20101010

REACTIONS (1)
  - STOMATITIS [None]
